FAERS Safety Report 10716809 (Version 2)
Quarter: 2015Q1

REPORT INFORMATION
  Report Type: Spontaneous
  Country: US (occurrence: US)
  Receive Date: 20150116
  Receipt Date: 20150121
  Transmission Date: 20150721
  Serious: Yes (Death)
  Sender: FDA-Public Use
  Company Number: US-009507513-1501USA005022

PATIENT
  Age: 48 Year
  Sex: Male

DRUGS (9)
  1. EMEND [Suspect]
     Active Substance: APREPITANT
     Dosage: UNK
     Route: 048
     Dates: start: 20141022
  2. EMEND [Suspect]
     Active Substance: APREPITANT
     Dosage: 125 MG, ONCE
     Route: 048
     Dates: start: 20140721, end: 20140721
  3. ALOXI [Concomitant]
     Active Substance: PALONOSETRON HYDROCHLORIDE
     Dosage: UNK
  4. EMEND [Suspect]
     Active Substance: APREPITANT
     Dosage: UNK
     Route: 048
     Dates: start: 20140910
  5. ETOPOSIDE. [Concomitant]
     Active Substance: ETOPOSIDE
     Indication: CHEMOTHERAPY
     Dosage: UNK
  6. CARBOPLATIN. [Concomitant]
     Active Substance: CARBOPLATIN
     Indication: CHEMOTHERAPY
     Dosage: UNK
  7. DEXAMETHASONE. [Concomitant]
     Active Substance: DEXAMETHASONE
     Dosage: UNK
     Route: 048
  8. KYTRIL [Concomitant]
     Active Substance: GRANISETRON HYDROCHLORIDE
     Dosage: UNK
  9. EMEND [Suspect]
     Active Substance: APREPITANT
     Dosage: UNK
     Route: 048
     Dates: start: 20140818

REACTIONS (1)
  - Death [Fatal]

NARRATIVE: CASE EVENT DATE: 20150104
